FAERS Safety Report 10614883 (Version 1)
Quarter: 2014Q4

REPORT INFORMATION
  Report Type: Spontaneous
  Country: GB (occurrence: GB)
  Receive Date: 20141201
  Receipt Date: 20141201
  Transmission Date: 20150529
  Serious: Yes (Hospitalization)
  Sender: FDA-Public Use
  Company Number: GB-ACCORD-027327

PATIENT
  Age: 25 Year

DRUGS (19)
  1. CARBOCISTEINE/CARBOCISTEINE LYSINE/CARBOCISTEINE SODIUM [Concomitant]
  2. FOLIC ACID. [Concomitant]
     Active Substance: FOLIC ACID
  3. PROGRAF [Concomitant]
     Active Substance: TACROLIMUS\TACROLIMUS ANHYDROUS
  4. BISOPROLOL [Concomitant]
     Active Substance: BISOPROLOL
  5. SULFAMETHOXAZOLE/TRIMETHOPRIM [Concomitant]
  6. TIOTROPIUM/TIOTROPIUM BROMIDE [Concomitant]
  7. SODIUM BICARBONATE. [Concomitant]
     Active Substance: SODIUM BICARBONATE
  8. ASPIRIN. [Concomitant]
     Active Substance: ASPIRIN
  9. SALMETEROL [Concomitant]
     Active Substance: SALMETEROL
  10. RITUXIMAB [Concomitant]
     Active Substance: RITUXIMAB
  11. SALBUTAMOL [Concomitant]
     Active Substance: ALBUTEROL
  12. ALENDRONATE SODIUM/ALENDRONIC ACID [Concomitant]
  13. ALFACALCIDOL [Concomitant]
     Active Substance: ALFACALCIDOL
  14. LANSOPRAZOLE. [Concomitant]
     Active Substance: LANSOPRAZOLE
  15. LEVETIRACETAM. [Suspect]
     Active Substance: LEVETIRACETAM
     Indication: PRODUCT USED FOR UNKNOWN INDICATION
     Dosage: STRENGTH: 500 MG TABLET
  16. MYCOPHENOLIC ACID. [Concomitant]
     Active Substance: MYCOPHENOLIC ACID
  17. DOXAZOSIN [Concomitant]
     Active Substance: DOXAZOSIN\DOXAZOSIN MESYLATE
  18. PREDNISOLONE. [Concomitant]
     Active Substance: PREDNISOLONE
  19. PERINDOPRIL/PERINDOPRIL ERBUMINE [Concomitant]

REACTIONS (3)
  - Diarrhoea [Unknown]
  - Vomiting [Unknown]
  - Drug dispensing error [Unknown]
